FAERS Safety Report 9778978 (Version 1)
Quarter: 2013Q4

REPORT INFORMATION
  Report Type: Spontaneous
  Country: JP (occurrence: JP)
  Receive Date: 20131223
  Receipt Date: 20131223
  Transmission Date: 20140711
  Serious: Yes (Other)
  Sender: FDA-Public Use
  Company Number: JP-B.I. PHARMACEUTICALS,INC./RIDGEFIELD-2013-BI-43264YA

PATIENT
  Age: 78 Year
  Sex: Male

DRUGS (2)
  1. TAMSULOSIN [Suspect]
     Dosage: FORMULATION: ORODISPERRSIBLE CR TABLET
     Route: 048
  2. URIEF [Concomitant]

REACTIONS (1)
  - Calculus bladder [Unknown]
